FAERS Safety Report 11654454 (Version 1)
Quarter: 2015Q4

REPORT INFORMATION
  Report Type: Spontaneous
  Country: DE (occurrence: DE)
  Receive Date: 20151023
  Receipt Date: 20151023
  Transmission Date: 20160304
  Serious: Yes (Hospitalization)
  Sender: FDA-Public Use
  Company Number: DE-SUN PHARMACEUTICAL INDUSTRIES LTD-2015RR-98416

PATIENT

DRUGS (1)
  1. CIPROFLOXACIN. [Suspect]
     Active Substance: CIPROFLOXACIN
     Indication: LARYNGITIS
     Dosage: 500 MG, BID
     Route: 048
     Dates: start: 20150129, end: 20150201

REACTIONS (8)
  - Alopecia [Recovering/Resolving]
  - Disturbance in attention [Recovering/Resolving]
  - Urticaria [Recovering/Resolving]
  - Ocular discomfort [Recovering/Resolving]
  - Musculoskeletal discomfort [Recovering/Resolving]
  - Arthralgia [Recovering/Resolving]
  - Yellow skin [Recovering/Resolving]
  - Tendonitis [Recovering/Resolving]

NARRATIVE: CASE EVENT DATE: 20150201
